FAERS Safety Report 20764711 (Version 2)
Quarter: 2023Q2

REPORT INFORMATION
  Report Type: Spontaneous
  Country: US (occurrence: US)
  Receive Date: 20220428
  Receipt Date: 20230613
  Transmission Date: 20230721
  Serious: No
  Sender: FDA-Public Use
  Company Number: US-PFIZER INC-202101112916

PATIENT
  Age: 69 Year
  Sex: Female
  Weight: 73.94 kg

DRUGS (2)
  1. TRIMETHOBENZAMIDE HYDROCHLORIDE [Suspect]
     Active Substance: TRIMETHOBENZAMIDE HYDROCHLORIDE
     Indication: Nausea
     Dosage: UNK
  2. TRIMETHOBENZAMIDE HYDROCHLORIDE [Suspect]
     Active Substance: TRIMETHOBENZAMIDE HYDROCHLORIDE
     Indication: Abdominal discomfort

REACTIONS (1)
  - Drug ineffective [Unknown]
